FAERS Safety Report 6507713-6 (Version None)
Quarter: 2009Q4

REPORT INFORMATION
  Report Type: 
  Country: None (occurrence: None)
  Receive Date: 20091201
  Receipt Date: 20090828
  Transmission Date: 20100525
  Serious: Yes (Hospitalization, Other)
  Sender: FDA-Public Use
  Company Number: 2009-196598-NL

PATIENT
  Age: 32 Year
  Sex: Female
  Weight: 68.0396 kg

DRUGS (2)
  1. NUVARING [Suspect]
     Indication: CONTRACEPTION
     Dosage: 1 DF; QM;
     Dates: start: 20070101, end: 20070501
  2. NUVARING [Suspect]
     Indication: OVARIAN CYST
     Dosage: 1 DF; QM;
     Dates: start: 20070101, end: 20070501

REACTIONS (1)
  - DEEP VEIN THROMBOSIS [None]
